FAERS Safety Report 25137352 (Version 1)
Quarter: 2025Q1

REPORT INFORMATION
  Report Type: Spontaneous
  Country: AU (occurrence: AU)
  Receive Date: 20250329
  Receipt Date: 20250329
  Transmission Date: 20250408
  Serious: Yes (Other)
  Sender: ACCORD
  Company Number: None

PATIENT
  Age: 51 Year
  Sex: Female

DRUGS (8)
  1. TACROLIMUS [Suspect]
     Active Substance: TACROLIMUS
     Indication: Product used for unknown indication
  2. CYCLOSPORINE [Concomitant]
     Active Substance: CYCLOSPORINE
  3. EVEROLIMUS [Concomitant]
     Active Substance: EVEROLIMUS
  4. LEVETIRACETAM [Concomitant]
     Active Substance: LEVETIRACETAM
  5. METHYLPREDNISOLONE [Concomitant]
     Active Substance: METHYLPREDNISOLONE
  6. MYCOPHENOLATE MOFETIL [Concomitant]
     Active Substance: MYCOPHENOLATE MOFETIL
  7. PREDNISOLONE [Concomitant]
     Active Substance: PREDNISOLONE
  8. VERAPAMIL [Concomitant]
     Active Substance: VERAPAMIL HYDROCHLORIDE

REACTIONS (1)
  - Reversible cerebral vasoconstriction syndrome [Unknown]
